FAERS Safety Report 10246825 (Version 1)
Quarter: 2014Q2

REPORT INFORMATION
  Report Type: Spontaneous
  Country: US (occurrence: None)
  Receive Date: 20140617
  Receipt Date: 20140617
  Transmission Date: 20141212
  Serious: Yes (Hospitalization)
  Sender: FDA-Public Use
  Company Number: IPC201406-000295

PATIENT
  Age: 53 Year
  Sex: Female

DRUGS (6)
  1. FUROSEMIDE [Suspect]
  2. HYDROCHLOROTHIAZIDE [Suspect]
  3. OLMESARTAN [Suspect]
  4. LISINOPRIL [Suspect]
  5. CELECOXIB [Suspect]
  6. HYDROMORPHONE (HYDROMORPHONE) (HYDROMORPHONE) [Concomitant]

REACTIONS (2)
  - Renal failure acute [None]
  - Renal impairment [None]
